FAERS Safety Report 12983466 (Version 1)
Quarter: 2016Q4

REPORT INFORMATION
  Report Type: Report from Study
  Country: US (occurrence: US)
  Receive Date: 20161129
  Receipt Date: 20161129
  Transmission Date: 20170207
  Serious: Yes (Hospitalization)
  Sender: FDA-Public Use
  Company Number: US-ALEXION PHARMACEUTICALS INC.-A201609228

PATIENT
  Age: 13 Year
  Sex: Female
  Weight: 39.7 kg

DRUGS (35)
  1. NORMAL SALINE [Concomitant]
     Active Substance: SODIUM CHLORIDE
     Indication: FLUID REPLACEMENT
     Dosage: UNK
     Route: 042
     Dates: start: 20161026, end: 20161027
  2. ERGOCALCIFEROL. [Concomitant]
     Active Substance: ERGOCALCIFEROL
     Dosage: 2000 IU, QD
     Route: 048
     Dates: start: 20161027
  3. NORVASC [Concomitant]
     Active Substance: AMLODIPINE BESYLATE
     Dosage: 5 MG, QD, MORNING
     Route: 048
     Dates: start: 20160917, end: 20161117
  4. PROGRAF [Concomitant]
     Active Substance: TACROLIMUS\TACROLIMUS ANHYDROUS
     Indication: IMMUNOSUPPRESSANT DRUG THERAPY
     Dosage: 7 MG, BID
     Route: 048
     Dates: start: 20090327, end: 20161028
  5. CALCITRIOL. [Concomitant]
     Active Substance: CALCITRIOL
     Indication: HYPERPARATHYROIDISM SECONDARY
     Dosage: 1 ?G, QD
     Route: 048
     Dates: start: 20100330
  6. ARANESP [Concomitant]
     Active Substance: DARBEPOETIN ALFA
     Indication: ANAEMIA
     Dosage: 60 ?G, EVERY OTHER WEEK
     Route: 058
     Dates: start: 20060124
  7. ARANESP [Concomitant]
     Active Substance: DARBEPOETIN ALFA
     Indication: RENAL IMPAIRMENT
  8. NUTROPIN AQ NUSPIN [Concomitant]
     Active Substance: SOMATROPIN
     Indication: FAILURE TO THRIVE
     Dosage: 2 MG, QD
     Route: 058
     Dates: start: 20060115
  9. ERGOCALCIFEROL. [Concomitant]
     Active Substance: ERGOCALCIFEROL
     Indication: VITAMIN D DEFICIENCY
     Dosage: 50000 IU, QMONTH
     Route: 065
     Dates: start: 20160930
  10. FLUOCINOLONE [Concomitant]
     Active Substance: FLUOCINOLONE
     Indication: PRODUCT USED FOR UNKNOWN INDICATION
     Dosage: 1 APPL, BID
     Route: 061
     Dates: start: 20161028
  11. HALOBETASOL [Concomitant]
     Active Substance: HALOBETASOL PROPIONATE
     Indication: PRODUCT USED FOR UNKNOWN INDICATION
     Dosage: 1 APPL, BID
     Route: 061
     Dates: start: 20161028
  12. KETOCONAZOLE. [Concomitant]
     Active Substance: KETOCONAZOLE
     Indication: PRODUCT USED FOR UNKNOWN INDICATION
     Dosage: 1 APPL, TWICE WEEKLY
     Route: 061
  13. NORVASC [Concomitant]
     Active Substance: AMLODIPINE BESYLATE
     Dosage: 2.5 MG, QD, BEDTIME
     Route: 048
     Dates: start: 20160917, end: 20161117
  14. PROGRAF [Concomitant]
     Active Substance: TACROLIMUS\TACROLIMUS ANHYDROUS
     Dosage: 6.5 MG, BID
     Route: 048
     Dates: start: 20161028
  15. CALCITRIOL. [Concomitant]
     Active Substance: CALCITRIOL
     Indication: RENAL IMPAIRMENT
     Dosage: 1.2 ?G, QD
     Route: 048
  16. SYNERA [Concomitant]
     Active Substance: LIDOCAINE\TETRACAINE
     Indication: PRODUCT USED FOR UNKNOWN INDICATION
     Dosage: 70 MG, PRN, PATCH
     Route: 061
  17. NUTROPIN AQ NUSPIN [Concomitant]
     Active Substance: SOMATROPIN
     Indication: RENAL IMPAIRMENT
  18. HYDROXYZINE HYDROCHLORIDE. [Concomitant]
     Active Substance: HYDROXYZINE HYDROCHLORIDE
     Indication: PRURITUS
     Dosage: 6 MG, Q6H
     Route: 048
     Dates: start: 20161027
  19. ECULIZUMAB [Suspect]
     Active Substance: ECULIZUMAB
     Dosage: 900 MG, Q2W
     Route: 042
     Dates: start: 20140124, end: 20161014
  20. NORVASC [Concomitant]
     Active Substance: AMLODIPINE BESYLATE
     Dosage: 5 MG, BID
     Route: 048
     Dates: start: 20161118
  21. CELLCEPT [Concomitant]
     Active Substance: MYCOPHENOLATE MOFETIL\MYCOPHENOLATE MOFETIL HYDROCHLORIDE
     Indication: IMMUNOSUPPRESSANT DRUG THERAPY
     Dosage: 360 MG, BID
     Route: 048
     Dates: start: 20090330
  22. AMOXICILLIN. [Concomitant]
     Active Substance: AMOXICILLIN
     Indication: ANTIBIOTIC PROPHYLAXIS
     Dosage: 250 MG, BID
     Route: 048
     Dates: start: 20120316
  23. AMOXICILLIN. [Concomitant]
     Active Substance: AMOXICILLIN
     Indication: INFECTION PROPHYLAXIS
  24. SODIUM CARBONATE [Concomitant]
     Active Substance: SODIUM CARBONATE
     Indication: METABOLIC ACIDOSIS
     Dosage: 1300 MG, MORNING
     Route: 048
     Dates: start: 20160108
  25. ECULIZUMAB [Suspect]
     Active Substance: ECULIZUMAB
     Indication: HAEMOLYTIC URAEMIC SYNDROME
     Dosage: 600 MG, SINGLE
     Route: 042
     Dates: start: 20091130, end: 20091130
  26. ECULIZUMAB [Suspect]
     Active Substance: ECULIZUMAB
     Dosage: 300 MG, Q2W
     Route: 042
     Dates: start: 20091207, end: 20120706
  27. NORVASC [Concomitant]
     Active Substance: AMLODIPINE BESYLATE
     Indication: HYPERTENSION
     Dosage: 2.5 MG, BID
     Route: 050
     Dates: start: 20091110, end: 20160916
  28. FERROUS SULFATE. [Concomitant]
     Active Substance: FERROUS SULFATE
     Indication: ANAEMIA
     Dosage: 325 MG, BID
     Route: 048
     Dates: start: 20160825
  29. ZYRTEC [Concomitant]
     Active Substance: CETIRIZINE HYDROCHLORIDE
     Indication: RHINITIS ALLERGIC
     Dosage: 5 MG, QD, PRN
     Route: 048
  30. FLONASE [Concomitant]
     Active Substance: FLUTICASONE PROPIONATE
     Indication: RHINITIS ALLERGIC
     Dosage: 50 ?G, BID, PRN
     Route: 050
  31. SODIUM CARBONATE [Concomitant]
     Active Substance: SODIUM CARBONATE
     Dosage: 650 MG, EVENING
     Route: 048
     Dates: start: 20160108
  32. ECULIZUMAB [Suspect]
     Active Substance: ECULIZUMAB
     Dosage: 1200 MG, Q2W
     Route: 042
     Dates: start: 20161028
  33. NORMAL SALINE [Concomitant]
     Active Substance: SODIUM CHLORIDE
     Indication: BLOOD CREATININE INCREASED
  34. ZANTAC [Concomitant]
     Active Substance: RANITIDINE HYDROCHLORIDE
     Indication: GASTROOESOPHAGEAL REFLUX DISEASE
     Dosage: 60 MG, BID
     Route: 048
     Dates: start: 20160302
  35. ECULIZUMAB [Suspect]
     Active Substance: ECULIZUMAB
     Dosage: 600 MG, Q2W
     Route: 042
     Dates: start: 20120720, end: 20140110

REACTIONS (1)
  - Renal impairment [Not Recovered/Not Resolved]

NARRATIVE: CASE EVENT DATE: 20161116
